FAERS Safety Report 4608238-5 (Version None)
Quarter: 2005Q1

REPORT INFORMATION
  Report Type: 
  Country: None (occurrence: None)
  Receive Date: 20050314
  Receipt Date: 20050110
  Transmission Date: 20050727
  Serious: Yes (Hospitalization)
  Sender: FDA-Public Use
  Company Number: AU-MERCK-0502AUS00167

PATIENT
  Age: 59 Year
  Sex: Male

DRUGS (3)
  1. VIOXX [Suspect]
     Route: 048
     Dates: start: 20010101, end: 20040101
  2. VENLAFAXINE HYDROCHLORIDE [Concomitant]
     Route: 048
  3. PRAZOSIN HYDROCHLORIDE [Concomitant]
     Route: 048

REACTIONS (1)
  - CEREBROVASCULAR ACCIDENT [None]
